FAERS Safety Report 7094767-4 (Version None)
Quarter: 2010Q4

REPORT INFORMATION
  Report Type: 
  Country: None (occurrence: None)
  Receive Date: 20101110
  Receipt Date: 20101104
  Transmission Date: 20110411
  Serious: Yes (Death)
  Sender: FDA-Public Use
  Company Number: US-GILEAD-2010-0032777

PATIENT
  Sex: Male
  Weight: 49.94 kg

DRUGS (17)
  1. LETAIRIS [Suspect]
     Indication: PULMONARY ARTERIAL HYPERTENSION
     Route: 048
     Dates: start: 20100225, end: 20101015
  2. REVATIO [Concomitant]
  3. VIAGRA [Concomitant]
  4. OXYGEN [Concomitant]
  5. WARFARIN [Concomitant]
  6. LASIX [Concomitant]
  7. DIGOXIN [Concomitant]
  8. DARVOCET [Concomitant]
  9. PROTONIX [Concomitant]
  10. PREDNISONE [Concomitant]
  11. FLUCONAZOLE [Concomitant]
  12. LOVENOX [Concomitant]
  13. BACITRACIN [Concomitant]
  14. LEVOFLOXACIN [Concomitant]
  15. LAMISIL [Concomitant]
  16. TYLENOL [Concomitant]
  17. MAGOX [Concomitant]

REACTIONS (1)
  - PULMONARY ARTERIAL HYPERTENSION [None]
